FAERS Safety Report 13044327 (Version 1)
Quarter: 2016Q4

REPORT INFORMATION
  Report Type: Spontaneous
  Country: NZ (occurrence: NZ)
  Receive Date: 20161220
  Receipt Date: 20161220
  Transmission Date: 20170207
  Serious: Yes (Life-Threatening, Hospitalization, Other)
  Sender: FDA-Public Use
  Company Number: NZ-MACLEODS PHARMACEUTICALS US LTD-MAC2016004049

PATIENT

DRUGS (2)
  1. LOSARTAN POTASSIUM. [Suspect]
     Active Substance: LOSARTAN POTASSIUM
     Indication: PRODUCT USED FOR UNKNOWN INDICATION
     Dosage: 2700 MG, SINGLE (27 TIMES MAX DAILY DOSE TOTAL)
     Route: 065
  2. AMLODIPINE BESYLATE. [Suspect]
     Active Substance: AMLODIPINE BESYLATE
     Indication: PRODUCT USED FOR UNKNOWN INDICATION
     Dosage: 200 MG, SINGLE (20 TIMES DAILY DOSE TOTAL)
     Route: 065

REACTIONS (10)
  - Vomiting [Unknown]
  - Metabolic acidosis [Unknown]
  - Renal failure [Recovered/Resolved]
  - Renal impairment [Recovered/Resolved]
  - Intentional overdose [Unknown]
  - Fluid overload [Unknown]
  - Respiratory failure [Unknown]
  - Condition aggravated [Recovered/Resolved]
  - Electrocardiogram ST segment depression [Unknown]
  - Hypotension [Unknown]
